FAERS Safety Report 25431357 (Version 2)
Quarter: 2025Q2

REPORT INFORMATION
  Report Type: Report from Study
  Country: US (occurrence: US)
  Receive Date: 20250613
  Receipt Date: 20250617
  Transmission Date: 20250717
  Serious: No
  Sender: ACADIA PHARMACEUTICALS
  Company Number: US-ACADIA PHARMACEUTICALS INC.-ACA-2025-PIM-006874

PATIENT
  Age: 77 Year
  Sex: Male

DRUGS (16)
  1. NUPLAZID [Suspect]
     Active Substance: PIMAVANSERIN TARTRATE
     Indication: Hallucination
     Dosage: 34 MILLIGRAM, QD
     Route: 048
     Dates: start: 20240814, end: 20250604
  2. NUPLAZID [Suspect]
     Active Substance: PIMAVANSERIN TARTRATE
     Indication: Parkinson^s disease psychosis
  3. ATORVASTATIN [Concomitant]
     Active Substance: ATORVASTATIN
  4. DONEPEZIL [Concomitant]
     Active Substance: DONEPEZIL
  5. DOXYCYCLINE [Concomitant]
     Active Substance: DOXYCYCLINE
  6. CYMBALTA [Concomitant]
     Active Substance: DULOXETINE HYDROCHLORIDE
  7. METOPROLOL [Concomitant]
     Active Substance: METOPROLOL
  8. NOVOLOG [Concomitant]
     Active Substance: INSULIN ASPART
  9. NOVOLIN R [Concomitant]
     Active Substance: INSULIN HUMAN
  10. LOSARTAN [Concomitant]
     Active Substance: LOSARTAN
  11. ASPIRIN [Concomitant]
     Active Substance: ASPIRIN
  12. JATENZO [Concomitant]
     Active Substance: TESTOSTERONE UNDECANOATE
  13. ROPINIROLE [Concomitant]
     Active Substance: ROPINIROLE
  14. MELOXICAM [Concomitant]
     Active Substance: MELOXICAM
  15. COBAMAMIDE [Concomitant]
     Active Substance: COBAMAMIDE
  16. VITAMIN D3 [Concomitant]
     Active Substance: CHOLECALCIFEROL

REACTIONS (5)
  - Fatigue [Not Recovered/Not Resolved]
  - Dizziness [Not Recovered/Not Resolved]
  - Balance disorder [Not Recovered/Not Resolved]
  - Nausea [Not Recovered/Not Resolved]
  - Dyspnoea [Not Recovered/Not Resolved]

NARRATIVE: CASE EVENT DATE: 20250101
